FAERS Safety Report 9014539 (Version 2)
Quarter: 2013Q1

REPORT INFORMATION
  Report Type: Report from Study
  Country: US (occurrence: US)
  Receive Date: 20130115
  Receipt Date: 20130122
  Transmission Date: 20140127
  Serious: Yes (Hospitalization, Other)
  Sender: FDA-Public Use
  Company Number: US-ACTELION-A-NJ2012-72333

PATIENT
  Age: 53 Year
  Sex: Female

DRUGS (6)
  1. TRACLEER [Suspect]
     Indication: PULMONARY ARTERIAL HYPERTENSION
     Dosage: UNK
     Route: 048
  2. TRACLEER [Suspect]
     Dosage: UNK
     Route: 048
  3. REMODULIN [Concomitant]
  4. ADCIRCA [Concomitant]
  5. COUMADIN [Concomitant]
  6. SILDENAFIL [Concomitant]

REACTIONS (15)
  - Transfusion [Unknown]
  - Atrial fibrillation [Recovering/Resolving]
  - Tachycardia [Recovering/Resolving]
  - Lymphadenopathy [Unknown]
  - Pneumonia [Recovering/Resolving]
  - Dyspnoea [Recovering/Resolving]
  - Oxygen saturation decreased [Recovering/Resolving]
  - Chest discomfort [Recovering/Resolving]
  - Fungal skin infection [Unknown]
  - Infusion site pain [Unknown]
  - Rash [Unknown]
  - Application site rash [Unknown]
  - Application site pruritus [Unknown]
  - Haemoptysis [Unknown]
  - Diarrhoea [Unknown]
